FAERS Safety Report 12133341 (Version 2)
Quarter: 2016Q2

REPORT INFORMATION
  Report Type: Spontaneous
  Country: JP (occurrence: JP)
  Receive Date: 20160301
  Receipt Date: 20160615
  Transmission Date: 20160815
  Serious: Yes (Hospitalization, Other)
  Sender: FDA-Public Use
  Company Number: JP-MYLANLABS-2016M1007972

PATIENT

DRUGS (2)
  1. PROGRAF [Suspect]
     Active Substance: TACROLIMUS\TACROLIMUS ANHYDROUS
     Indication: CHRONIC GRAFT VERSUS HOST DISEASE
     Dosage: 16 MG, 2X
     Route: 048
  2. NEORAL [Suspect]
     Active Substance: CYCLOSPORINE
     Indication: CHRONIC GRAFT VERSUS HOST DISEASE
     Dosage: 50 MG, 2X
     Route: 048

REACTIONS (1)
  - Oesophageal carcinoma [Unknown]

NARRATIVE: CASE EVENT DATE: 20150113
